FAERS Safety Report 14358752 (Version 2)
Quarter: 2018Q3

REPORT INFORMATION
  Report Type: Report from Study
  Country: US (occurrence: US)
  Receive Date: 20180105
  Receipt Date: 20180827
  Transmission Date: 20181010
  Serious: Yes (Other)
  Sender: FDA-Public Use
  Company Number: US-SA-2017SA253717

PATIENT
  Age: 63 Year
  Sex: Female

DRUGS (1)
  1. DUPILUMAB [Suspect]
     Active Substance: DUPILUMAB
     Dosage: 300 MG,QOW
     Route: 058
     Dates: start: 2017

REACTIONS (3)
  - Ocular hyperaemia [Unknown]
  - Precancerous skin lesion [Unknown]
  - Eye pruritus [Unknown]

NARRATIVE: CASE EVENT DATE: 2017
